FAERS Safety Report 19410326 (Version 1)
Quarter: 2021Q2

REPORT INFORMATION
  Report Type: Spontaneous
  Country: BH (occurrence: BH)
  Receive Date: 20210612
  Receipt Date: 20210612
  Transmission Date: 20210717
  Serious: Yes (Other)
  Sender: FDA-Public Use
  Company Number: None

PATIENT
  Age: 56 Year
  Sex: Male
  Weight: 93 kg

DRUGS (6)
  1. METFORMIN 200 MG [Concomitant]
  2. BAMLANIVIMAB. [Suspect]
     Active Substance: BAMLANIVIMAB
     Indication: COVID-19
     Dates: start: 20210611, end: 20210611
  3. ZINC 50 MG [Concomitant]
  4. GLIMEPIRIDE 4 MG [Concomitant]
     Active Substance: GLIMEPIRIDE
  5. SITAGLIBTIN 100 MG [Concomitant]
  6. VIT C 1000 MG [Concomitant]

REACTIONS (1)
  - Pyrexia [None]

NARRATIVE: CASE EVENT DATE: 20210611
